FAERS Safety Report 4468485-2 (Version None)
Quarter: 2004Q3

REPORT INFORMATION
  Report Type: 
  Country: None (occurrence: None)
  Receive Date: 20040917
  Receipt Date: 20040601
  Transmission Date: 20050211
  Serious: No
  Sender: FDA-Public Use
  Company Number: US-JNJFOC-20040601282

PATIENT
  Age: 22 Year
  Sex: Female
  Weight: 74.3899 kg

DRUGS (7)
  1. ORTHO EVRA [Suspect]
     Indication: CONTRACEPTION
     Dosage: 1 DOSE(S), 3 IN 4 WEEK, TRANSDERMAL
     Route: 062
     Dates: start: 20040525
  2. EXCEDRIN (MIGRAINE) [Concomitant]
  3. HYDROXYZINE [Concomitant]
  4. ZYRTEC [Concomitant]
  5. ZOMAD (ALL OTHER THERAPEUTIC PRODUCTS) [Concomitant]
  6. ELAVIL [Concomitant]
  7. SINGULAIR [Concomitant]

REACTIONS (2)
  - APPLICATION SITE REACTION [None]
  - MIGRAINE [None]
